FAERS Safety Report 20890997 (Version 1)
Quarter: 2022Q2

REPORT INFORMATION
  Report Type: Spontaneous
  Country: US (occurrence: US)
  Receive Date: 20220530
  Receipt Date: 20220530
  Transmission Date: 20220721
  Serious: No
  Sender: FDA-Public Use
  Company Number: US-AMGEN-USASP2022085893

PATIENT
  Age: 53 Year
  Sex: Male

DRUGS (2)
  1. XGEVA [Suspect]
     Active Substance: DENOSUMAB
     Indication: Hypercalcaemia of malignancy
     Dosage: 120 MILLIGRAM
     Route: 058
  2. CALCITONIN [Concomitant]
     Active Substance: CALCITONIN
     Route: 042

REACTIONS (2)
  - Hypercalcaemia [Recovered/Resolved]
  - Blood calcium decreased [Recovered/Resolved]
